FAERS Safety Report 13343284 (Version 1)
Quarter: 2017Q1

REPORT INFORMATION
  Report Type: Report from Study
  Country: TR (occurrence: TR)
  Receive Date: 20170316
  Receipt Date: 20170316
  Transmission Date: 20170428
  Serious: Yes (Death)
  Sender: FDA-Public Use
  Company Number: TR-PFIZER INC-2017108672

PATIENT

DRUGS (2)
  1. LINEZOLID. [Suspect]
     Active Substance: LINEZOLID
     Indication: MENINGITIS STAPHYLOCOCCAL
     Dosage: 600 MG, 2X/DAY
     Route: 042
  2. DAPTOMYCIN. [Suspect]
     Active Substance: DAPTOMYCIN
     Indication: MENINGITIS STAPHYLOCOCCAL
     Dosage: UNK

REACTIONS (1)
  - Treatment failure [Fatal]
